FAERS Safety Report 7803120-4 (Version None)
Quarter: 2011Q4

REPORT INFORMATION
  Report Type: 
  Country: None (occurrence: None)
  Receive Date: 20111007
  Receipt Date: 20110927
  Transmission Date: 20120403
  Serious: Yes (Hospitalization, Other)
  Sender: FDA-Public Use
  Company Number: PHHY2011TW87016

PATIENT
  Age: 81 Year
  Sex: Female

DRUGS (2)
  1. WARFARIN SODIUM [Interacting]
     Indication: ISCHAEMIC GASTRITIS
     Dosage: 2.5 MG, QD
  2. FLUVASTATIN SODIUM [Suspect]
     Indication: DYSLIPIDAEMIA
     Dosage: 80 MG, QD

REACTIONS (3)
  - HAEMATOMA [None]
  - DRUG INTERACTION [None]
  - INTERNATIONAL NORMALISED RATIO INCREASED [None]
